FAERS Safety Report 5293421-9 (Version None)
Quarter: 2007Q1

REPORT INFORMATION
  Report Type: 
  Country: None (occurrence: None)
  Receive Date: 20070116
  Receipt Date: 20060508
  Transmission Date: 20070707
  Serious: Yes (Hospitalization, Other)
  Sender: FDA-Public Use
  Company Number: HQWYE769003AUG04

PATIENT
  Age: 58 Year
  Sex: Female
  Weight: 72.64 kg

DRUGS (5)
  1. PREMPRO [Suspect]
     Indication: MENOPAUSE
     Dosage: 0.625 MG/2.5 MG
     Dates: start: 19950101, end: 20000801
  2. ESTROPIPATE [Suspect]
  3. MEDROXYPROGESTERONE [Suspect]
  4. PREMARIN [Suspect]
     Indication: MENOPAUSE
     Dosage: ^PINK PILL^
     Dates: start: 19920101, end: 19950101
  5. PROVERA [Suspect]

REACTIONS (1)
  - BREAST CANCER [None]
